FAERS Safety Report 21640361 (Version 2)
Quarter: 2022Q4

REPORT INFORMATION
  Report Type: Spontaneous
  Country: US (occurrence: US)
  Receive Date: 20221124
  Receipt Date: 20221222
  Transmission Date: 20230113
  Serious: No
  Sender: FDA-Public Use
  Company Number: US-BoehringerIngelheim-2022-BI-204576

PATIENT
  Sex: Female

DRUGS (1)
  1. COMBIVENT RESPIMAT [Suspect]
     Active Substance: ALBUTEROL SULFATE\IPRATROPIUM BROMIDE
     Indication: Bronchospasm
     Dosage: THREE TO FOUR SPRAYS; UP TO FOUR SPRAYS AS NEEDED
     Dates: start: 2012

REACTIONS (3)
  - Intentional product use issue [Unknown]
  - Product delivery mechanism issue [Unknown]
  - Product quality issue [Unknown]
